FAERS Safety Report 17328800 (Version 1)
Quarter: 2020Q1

REPORT INFORMATION
  Report Type: Report from Study
  Country: US (occurrence: US)
  Receive Date: 20200127
  Receipt Date: 20200127
  Transmission Date: 20200409
  Serious: Yes (Hospitalization)
  Sender: FDA-Public Use
  Company Number: US-BIOGEN-2019BI00772236

PATIENT
  Age: 52 Year
  Sex: Female

DRUGS (4)
  1. TECFIDERA [Suspect]
     Active Substance: DIMETHYL FUMARATE
     Indication: MULTIPLE SCLEROSIS
     Dosage: X 7 DAYS
     Route: 048
     Dates: start: 20190717, end: 20190723
  2. TECFIDERA [Suspect]
     Active Substance: DIMETHYL FUMARATE
     Route: 048
     Dates: start: 201907
  3. VIMPAT [Suspect]
     Active Substance: LACOSAMIDE
     Indication: SEIZURE
     Route: 065
  4. TECFIDERA [Suspect]
     Active Substance: DIMETHYL FUMARATE
     Dosage: X 23 DAYS AFTER 120 MG DOSE
     Route: 048
     Dates: start: 20190724

REACTIONS (21)
  - Fatigue [Unknown]
  - Hypersomnia [Unknown]
  - Memory impairment [Unknown]
  - Alopecia [Unknown]
  - Pain in extremity [Unknown]
  - Sopor [Unknown]
  - Arthralgia [Unknown]
  - Muscular weakness [Unknown]
  - Central nervous system lesion [Unknown]
  - Feeding disorder [Recovered/Resolved]
  - Multiple sclerosis [Unknown]
  - Musculoskeletal stiffness [Unknown]
  - Abdominal discomfort [Recovered/Resolved]
  - Flushing [Recovered/Resolved with Sequelae]
  - Constipation [Unknown]
  - Cognitive disorder [Unknown]
  - Drug hypersensitivity [Unknown]
  - Dyspepsia [Recovered/Resolved with Sequelae]
  - Pharyngeal swelling [Recovered/Resolved]
  - Vitamin D decreased [Unknown]
  - Paraesthesia [Unknown]

NARRATIVE: CASE EVENT DATE: 2019
